FAERS Safety Report 6678606-9 (Version None)
Quarter: 2010Q2

REPORT INFORMATION
  Report Type: 
  Country: None (occurrence: None)
  Receive Date: 20100412
  Receipt Date: 20100412
  Transmission Date: 20101027
  Serious: No
  Sender: FDA-Public Use
  Company Number: None

PATIENT
  Age: 58 Year
  Sex: Female
  Weight: 46 kg

DRUGS (11)
  1. INSULIN, ASPART [Suspect]
     Indication: TYPE 1 DIABETES MELLITUS
     Dosage: 8/8 UNITS SQ
     Route: 058
     Dates: start: 20091208
  2. INSULIN GLARGINE [Suspect]
     Indication: TYPE 1 DIABETES MELLITUS
     Dosage: 8/6
     Route: 058
     Dates: start: 20091206, end: 20091207
  3. ACETYLCYSTEINE [Concomitant]
  4. AMLODIPINE [Concomitant]
  5. ASPIRIN [Concomitant]
  6. CALCIUM ACETATE [Concomitant]
  7. HYDROMORPHONE HCL [Concomitant]
  8. CLONIDINE [Concomitant]
  9. CLOPIDOGREL [Concomitant]
  10. DOCUSATE [Concomitant]
  11. HEPARIN [Concomitant]

REACTIONS (5)
  - BLOOD GLUCOSE DECREASED [None]
  - BLOOD GLUCOSE INCREASED [None]
  - DIZZINESS [None]
  - MEDICAL DEVICE COMPLICATION [None]
  - RASH [None]
